FAERS Safety Report 4930010-7 (Version None)
Quarter: 2006Q1

REPORT INFORMATION
  Report Type: 
  Country: None (occurrence: None)
  Receive Date: 20060302
  Receipt Date: 20060216
  Transmission Date: 20060701
  Serious: Yes (Other)
  Sender: FDA-Public Use
  Company Number: PHRM2006FR00846

PATIENT
  Age: 60 Year
  Sex: Male

DRUGS (9)
  1. PARAPSYLLIUM [Concomitant]
     Route: 048
  2. ESOMEPRAZOLE [Concomitant]
     Route: 048
  3. FLUDEX - SLOW RELEASE [Concomitant]
     Route: 048
  4. PLAVIX [Concomitant]
     Route: 048
  5. SPASFON-LYOC [Concomitant]
     Route: 048
  6. FENOFIBRATE [Concomitant]
     Route: 048
  7. XATRAL [Concomitant]
     Route: 048
  8. LIORESAL [Suspect]
     Indication: MUSCULOSKELETAL STIFFNESS
     Dosage: 10 MG AT 13:00 AND 10 MG AT 19:00
     Route: 048
     Dates: start: 20060215, end: 20060215
  9. LIORESAL [Suspect]
     Dosage: 10 MG IN THE MORNING
     Route: 048
     Dates: start: 20060216, end: 20060216

REACTIONS (4)
  - ABASIA [None]
  - LARYNGEAL DISCOMFORT [None]
  - MUSCULOSKELETAL DISCOMFORT [None]
  - SUFFOCATION FEELING [None]
